FAERS Safety Report 19395203 (Version 1)
Quarter: 2021Q2

REPORT INFORMATION
  Report Type: Spontaneous
  Country: BR (occurrence: BR)
  Receive Date: 20210609
  Receipt Date: 20210609
  Transmission Date: 20210717
  Serious: Yes (Other)
  Sender: FDA-Public Use
  Company Number: BR-PFIZER INC-2021605568

PATIENT
  Age: 89 Year
  Sex: Female

DRUGS (2)
  1. LYRICA [Suspect]
     Active Substance: PREGABALIN
     Dosage: 75 MG
  2. RIVOTRIL [Suspect]
     Active Substance: CLONAZEPAM

REACTIONS (2)
  - Dizziness [Unknown]
  - Fall [Unknown]
